FAERS Safety Report 12968191 (Version 1)
Quarter: 2016Q4

REPORT INFORMATION
  Report Type: Spontaneous
  Country: US (occurrence: US)
  Receive Date: 20161123
  Receipt Date: 20161123
  Transmission Date: 20170207
  Serious: No
  Sender: FDA-Public Use
  Company Number: US-BAYER-2016-223970

PATIENT
  Age: 76 Year
  Sex: Female
  Weight: 77.98 kg

DRUGS (2)
  1. MIRALAX [Suspect]
     Active Substance: POLYETHYLENE GLYCOL 3350
     Indication: CONSTIPATION PROPHYLAXIS
     Dosage: 1 DOSE, UNK
     Route: 048
     Dates: start: 20161119
  2. RENVELA [Concomitant]
     Active Substance: SEVELAMER CARBONATE
     Dosage: UNK

REACTIONS (6)
  - Feeling abnormal [Unknown]
  - Off label use [Unknown]
  - Medication monitoring error [Unknown]
  - Nausea [Unknown]
  - Labelled drug-disease interaction medication error [Unknown]
  - Decreased appetite [None]
